FAERS Safety Report 22588193 (Version 1)
Quarter: 2023Q2

REPORT INFORMATION
  Report Type: Other
  Country: FR (occurrence: FR)
  Receive Date: 20230612
  Receipt Date: 20230612
  Transmission Date: 20230721
  Serious: Yes (Other)
  Sender: FDA-Public Use
  Company Number: None

PATIENT
  Age: 15 Year
  Sex: Female
  Weight: 50 kg

DRUGS (2)
  1. COLCHICINE [Suspect]
     Active Substance: COLCHICINE
     Indication: Pericarditis
     Dosage: 0.5 MILLIGRAM, QD
     Route: 048
     Dates: start: 20230403
  2. IBUPROFEN [Suspect]
     Active Substance: IBUPROFEN
     Indication: Pericarditis
     Dosage: 600 MILLIGRAM, QID
     Route: 048
     Dates: start: 20230403

REACTIONS (4)
  - Haematemesis [None]
  - Syncope [Recovered/Resolved]
  - Chest pain [None]
  - Off label use [Unknown]

NARRATIVE: CASE EVENT DATE: 20230409
